FAERS Safety Report 4690630-4 (Version None)
Quarter: 2005Q2

REPORT INFORMATION
  Report Type: 
  Country: None (occurrence: None)
  Receive Date: 20050615
  Receipt Date: 20050401
  Transmission Date: 20051028
  Serious: Yes (Hospitalization)
  Sender: FDA-Public Use
  Company Number: US-GLAXOSMITHKLINE-A0552342A

PATIENT
  Sex: Male
  Weight: 61.8 kg

DRUGS (3)
  1. BUPROPION [Suspect]
     Indication: DEPRESSION
     Dosage: 150MG TWICE PER DAY
     Route: 048
     Dates: start: 20030602, end: 20050314
  2. PAXIL [Concomitant]
  3. CLONAZEPAM [Concomitant]
     Dosage: 1MG PER DAY

REACTIONS (3)
  - AMNESIA [None]
  - AURA [None]
  - CONVULSION [None]
